FAERS Safety Report 6011709-0 (Version None)
Quarter: 2008Q4

REPORT INFORMATION
  Report Type: 
  Country: None (occurrence: None)
  Receive Date: 20081218
  Receipt Date: 19900801
  Transmission Date: 20090506
  Serious: Yes (Death, Hospitalization)
  Sender: FDA-Public Use
  Company Number: CA-ROCHE-900150746001

PATIENT
  Sex: Male
  Weight: 75 kg

DRUGS (8)
  1. INTERFERON ALFA-2A [Suspect]
     Route: 058
     Dates: start: 19900514, end: 19900702
  2. FLUOROURACIL [Suspect]
     Route: 042
     Dates: start: 19900514, end: 19900518
  3. FLUOROURACIL [Suspect]
     Route: 042
     Dates: start: 19900528, end: 19900618
  4. FLUOROURACIL [Suspect]
     Route: 042
     Dates: start: 19900625, end: 19900625
  5. FLUOROURACIL [Suspect]
     Route: 042
     Dates: start: 19900703, end: 19900703
  6. MS CONTIN [Concomitant]
     Route: 048
     Dates: start: 19900507, end: 19900514
  7. DIAZEPAM [Concomitant]
     Route: 048
     Dates: start: 19900627, end: 19900714
  8. OXAZEPAM [Concomitant]
     Route: 048
     Dates: start: 19900714, end: 19900730

REACTIONS (3)
  - COLORECTAL CANCER [None]
  - CONFUSIONAL STATE [None]
  - SOMNOLENCE [None]
